FAERS Safety Report 20364408 (Version 1)
Quarter: 2022Q1

REPORT INFORMATION
  Report Type: Spontaneous
  Country: FR (occurrence: FR)
  Receive Date: 20220121
  Receipt Date: 20220121
  Transmission Date: 20220424
  Serious: Yes (Hospitalization)
  Sender: FDA-Public Use
  Company Number: None

PATIENT
  Age: 19 Year
  Sex: Female
  Weight: 60 kg

DRUGS (8)
  1. ACETAMINOPHEN [Suspect]
     Active Substance: ACETAMINOPHEN
     Indication: Suicide attempt
     Dosage: 13 G
     Route: 048
     Dates: start: 20210810, end: 20210810
  2. AMOXICILLIN [Suspect]
     Active Substance: AMOXICILLIN
     Indication: Suicide attempt
     Dosage: 6 G
     Route: 048
     Dates: start: 20210810, end: 20210810
  3. ALPRAZOLAM [Suspect]
     Active Substance: ALPRAZOLAM
     Indication: Suicide attempt
     Dosage: 6.75 MG
     Route: 048
     Dates: start: 20210810, end: 20210810
  4. CODEINE [Suspect]
     Active Substance: CODEINE
     Indication: Suicide attempt
     Dosage: QUANTIT? NON CONNUE
     Route: 048
     Dates: start: 20210810, end: 20210810
  5. IXPRIM [Suspect]
     Active Substance: ACETAMINOPHEN\TRAMADOL HYDROCHLORIDE
     Indication: Suicide attempt
     Dosage: QUANTIT? NON CONNUE
     Route: 048
     Dates: start: 20210810, end: 20210810
  6. PRISTINAMYCIN [Suspect]
     Active Substance: PRISTINAMYCIN
     Indication: Suicide attempt
     Dosage: 4 G
     Route: 048
     Dates: start: 20210810, end: 20210810
  7. IBUPROFEN [Suspect]
     Active Substance: IBUPROFEN
     Indication: Suicide attempt
     Dosage: 25 G
     Route: 048
     Dates: start: 20210810, end: 20210810
  8. KETOPROFEN [Suspect]
     Active Substance: KETOPROFEN
     Indication: Suicide attempt
     Dosage: 800 MG
     Route: 048
     Dates: start: 20210810, end: 20210810

REACTIONS (2)
  - Altered state of consciousness [Recovered/Resolved]
  - Toxicity to various agents [Recovered/Resolved]

NARRATIVE: CASE EVENT DATE: 20210810
